FAERS Safety Report 10066639 (Version 1)
Quarter: 2014Q2

REPORT INFORMATION
  Report Type: Spontaneous
  Country: US (occurrence: US)
  Receive Date: 20140408
  Receipt Date: 20140408
  Transmission Date: 20141212
  Serious: No
  Sender: FDA-Public Use
  Company Number: US-GILEAD-2014-0098750

PATIENT
  Age: 57 Year
  Sex: Female

DRUGS (3)
  1. SOVALDI [Suspect]
     Indication: HEPATITIS C
     Dosage: 400 MG, UNK
     Route: 065
  2. RIBAVIRIN [Concomitant]
     Dosage: 1000 MG, UNK
  3. LITHIUM [Concomitant]

REACTIONS (2)
  - Weight decreased [Unknown]
  - Mental disorder [Unknown]
